FAERS Safety Report 20709966 (Version 3)
Quarter: 2025Q3

REPORT INFORMATION
  Report Type: Spontaneous
  Country: TW (occurrence: TW)
  Receive Date: 20220414
  Receipt Date: 20250915
  Transmission Date: 20251020
  Serious: Yes (Death, Other)
  Sender: PFIZER
  Company Number: TW-PFIZER INC-202200533553

PATIENT
  Age: 48 Year
  Sex: Male

DRUGS (2)
  1. METHOTREXATE SODIUM [Suspect]
     Active Substance: METHOTREXATE SODIUM
     Indication: Oesophageal squamous cell carcinoma
     Dates: start: 201709, end: 201710
  2. PEMBROLIZUMAB [Suspect]
     Active Substance: PEMBROLIZUMAB
     Indication: Oesophageal squamous cell carcinoma
     Dates: start: 201709, end: 201710

REACTIONS (2)
  - Squamous cell carcinoma of skin [Fatal]
  - Metastases to skin [Fatal]

NARRATIVE: CASE EVENT DATE: 20170101
